FAERS Safety Report 4712654-0 (Version None)
Quarter: 2005Q3

REPORT INFORMATION
  Report Type: 
  Country: None (occurrence: None)
  Receive Date: 20050711
  Receipt Date: 20050701
  Transmission Date: 20060218
  Serious: Yes (Hospitalization, Other)
  Sender: FDA-Public Use
  Company Number: KII-2005-0017324

PATIENT
  Age: 22 Year
  Sex: Male

DRUGS (3)
  1. OXYCONTIN [Suspect]
     Indication: DRUG USE FOR UNKNOWN INDICATION
     Dosage: ORAL
     Route: 048
  2. BENZODIAZEPINE DERIVATIVES () [Suspect]
     Indication: DRUG USE FOR UNKNOWN INDICATION
     Dosage: ORAL
     Route: 048
  3. COACINE (COCAINE) [Suspect]
     Indication: DRUG USE FOR UNKNOWN INDICATION

REACTIONS (5)
  - ASPIRATION [None]
  - BODY TEMPERATURE INCREASED [None]
  - COMA [None]
  - POLYSUBSTANCE ABUSE [None]
  - VOMITING [None]
